FAERS Safety Report 11434396 (Version 1)
Quarter: 2015Q3

REPORT INFORMATION
  Report Type: Spontaneous
  Country: US (occurrence: None)
  Receive Date: 20150828
  Receipt Date: 20150828
  Transmission Date: 20151125
  Serious: No
  Sender: FDA-Public Use
  Company Number: None

PATIENT
  Age: 52 Year
  Sex: Female
  Weight: 72.58 kg

DRUGS (7)
  1. VITAMIN K [Concomitant]
     Active Substance: PHYTONADIONE
  2. CALCIUM [Concomitant]
     Active Substance: CALCIUM
  3. VITAMIN B COMPLEX [Concomitant]
     Active Substance: CYANOCOBALAMIN\DEXPANTHENOL\NIACINAMIDE\PYRIDOXINE HYDROCHLORIDE\RIBOFLAVIN 5^-PHOSPHATE SODIUM\THIAMINE HYDROCHLORIDE\VITAMIN B COMPLEX
  4. VITAMIN C [Concomitant]
     Active Substance: ASCORBIC ACID
  5. NEW CHAPTER ESTROTONE [Concomitant]
  6. SUPREP BOWEL PREP [Suspect]
     Active Substance: MAGNESIUM SULFATE\POTASSIUM SULFATE\SODIUM SULFATE
     Indication: COLONOSCOPY
     Dosage: 2 SIX OZ. BOTTLE DIL. WATER AS NEEDED TAKEN BY MOUTH
     Route: 048
     Dates: start: 20140716, end: 20140716
  7. ASCENTA FISH OIL WITH VITAMIN D [Concomitant]

REACTIONS (20)
  - Hypoaesthesia [None]
  - Chills [None]
  - Dehydration [None]
  - Fatigue [None]
  - Thinking abnormal [None]
  - Arthropathy [None]
  - Paraesthesia [None]
  - Muscle twitching [None]
  - Blood oestrogen decreased [None]
  - Dizziness [None]
  - Arthritis [None]
  - Abdominal distension [None]
  - Back pain [None]
  - Hyperhidrosis [None]
  - Pain [None]
  - Tremor [None]
  - Adrenal disorder [None]
  - Abdominal discomfort [None]
  - Hormone level abnormal [None]
  - Blood cortisol increased [None]

NARRATIVE: CASE EVENT DATE: 20140716
